FAERS Safety Report 10439426 (Version 1)
Quarter: 2014Q3

REPORT INFORMATION
  Report Type: Spontaneous
  Country: CZ (occurrence: CZ)
  Receive Date: 20140908
  Receipt Date: 20140908
  Transmission Date: 20150326
  Serious: Yes (Other)
  Sender: FDA-Public Use
  Company Number: CZ-TEVA-505773ISR

PATIENT
  Age: 72 Year
  Sex: Female

DRUGS (2)
  1. WARFARIN 3 MG [Concomitant]
     Dosage: 1.5 MILLIGRAM DAILY;
     Route: 048
  2. TEVAGRASTIM 30 MU [Suspect]
     Active Substance: FILGRASTIM
     Indication: PROPHYLAXIS
     Dosage: 30 MU DAILY;
     Route: 058
     Dates: start: 20140808, end: 20140812

REACTIONS (2)
  - Myalgia [Recovered/Resolved]
  - Bone pain [Recovered/Resolved]

NARRATIVE: CASE EVENT DATE: 20140808
